FAERS Safety Report 4768056-4 (Version None)
Quarter: 2005Q3

REPORT INFORMATION
  Report Type: 
  Country: None (occurrence: None)
  Receive Date: 20050906
  Receipt Date: 20050505
  Transmission Date: 20060218
  Serious: No
  Sender: FDA-Public Use
  Company Number: 2005-BP-07554BP

PATIENT
  Age: 72 Year
  Sex: Male
  Weight: 82.27 kg

DRUGS (1)
  1. SPIRIVA [Suspect]
     Indication: CHRONIC OBSTRUCTIVE PULMONARY DISEASE
     Dosage: (18 MCG), IH
     Route: 055

REACTIONS (2)
  - DRUG INEFFECTIVE [None]
  - GINGIVAL PAIN [None]
